FAERS Safety Report 8813564 (Version 2)
Quarter: 2013Q2

REPORT INFORMATION
  Report Type: Spontaneous
  Country: US (occurrence: US)
  Receive Date: 20120927
  Receipt Date: 20130606
  Transmission Date: 20140414
  Serious: No
  Sender: FDA-Public Use
  Company Number: US-AMGEN-USASP2012042197

PATIENT
  Age: 87 Year
  Sex: Female

DRUGS (6)
  1. PROLIA [Suspect]
     Indication: OSTEOPOROSIS POSTMENOPAUSAL
     Dosage: UNK UNK, Q6MO
     Dates: start: 201011
  2. PROLIA [Suspect]
  3. EYE DROPS [Concomitant]
  4. HYDROCHLOROTHIAZIDE [Concomitant]
     Indication: HYPERTENSION
     Dosage: 12.5 MG, QD
  5. LUMIGAN [Concomitant]
     Indication: GLAUCOMA
  6. RESTASIS [Concomitant]
     Indication: GLAUCOMA

REACTIONS (9)
  - Fall [Unknown]
  - Injury [Unknown]
  - Gingival recession [Unknown]
  - Fatigue [Not Recovered/Not Resolved]
  - Pruritus [Not Recovered/Not Resolved]
  - Back pain [Unknown]
  - Insomnia [Unknown]
  - Cystitis [Unknown]
  - Pain in extremity [Unknown]
